FAERS Safety Report 5474201-8 (Version None)
Quarter: 2007Q3

REPORT INFORMATION
  Report Type: 
  Country: None (occurrence: None)
  Receive Date: 20070928
  Receipt Date: 20070815
  Transmission Date: 20080115
  Serious: Yes (Congenital Anomaly)
  Sender: FDA-Public Use
  Company Number: WAES 0708USA05865

PATIENT
  Age: 28 Year
  Sex: Female

DRUGS (7)
  1. CRIXIVAN [Suspect]
  2. SUSTIVA [Concomitant]
  3. LAMIVUDINE [Concomitant]
  4. NELFINAVIR MESYLATE [Concomitant]
  5. NEVIRAPINE [Concomitant]
  6. RITONAVIR [Concomitant]
  7. ZIDOVUDINE [Concomitant]

REACTIONS (2)
  - DRUG EXPOSURE DURING PREGNANCY [None]
  - FALLOT'S TETRALOGY [None]
